FAERS Safety Report 8950025 (Version 1)
Quarter: 2012Q4

REPORT INFORMATION
  Report Type: 
  Country: US (occurrence: US)
  Receive Date: 20121205
  Receipt Date: 20121205
  Transmission Date: 20130627
  Serious: No
  Sender: FDA-Public Use
  Company Number: US-BAYER-2012-125895

PATIENT
  Age: 51 Year
  Sex: Female
  Weight: 56.69 kg

DRUGS (12)
  1. BAYER MIGRAINE FORMULA [Suspect]
     Indication: HEADACHE
     Dosage: 2 DF, BID
     Route: 048
     Dates: start: 20121125, end: 20121126
  2. ALEVE CAPLET/TABLET,MIDOL EXTENDED RELIEF CAPLET [Suspect]
     Indication: HEADACHE
     Dosage: 2 DF, BID
     Route: 048
     Dates: start: 20121123, end: 20121124
  3. OXYCONTIN [Concomitant]
  4. ROXICODONE [Concomitant]
  5. ATENOLOL [Concomitant]
  6. SYNTHROID [Concomitant]
  7. SYMBICORT [Concomitant]
  8. ALBUTEROL [Concomitant]
  9. COMBIVENT [IPRATROPIUM BROMIDE,SALBUTAMOL] [Concomitant]
  10. NEXIUM [Concomitant]
  11. SOMA [Concomitant]
  12. KLONOPIN [Concomitant]

REACTIONS (3)
  - Incorrect dose administered [None]
  - Drug ineffective [None]
  - Drug ineffective [None]
